FAERS Safety Report 8515726-8 (Version None)
Quarter: 2012Q3

REPORT INFORMATION
  Report Type: 
  Country: None (occurrence: None)
  Receive Date: 20120717
  Receipt Date: 20120713
  Transmission Date: 20120928
  Serious: Yes (Hospitalization, Other)
  Sender: FDA-Public Use
  Company Number: PHHY2012BR060711

PATIENT
  Sex: Female

DRUGS (1)
  1. TRILEPTAL [Suspect]
     Indication: NEUROCYSTICERCOSIS
     Dosage: UNK UKN, UNK

REACTIONS (5)
  - URINARY TRACT INFECTION [None]
  - VAGUS NERVE DISORDER [None]
  - MALAISE [None]
  - SYNCOPE [None]
  - BLOOD PRESSURE DECREASED [None]
